FAERS Safety Report 6596707-0 (Version None)
Quarter: 2010Q1

REPORT INFORMATION
  Report Type: 
  Country: None (occurrence: None)
  Receive Date: 20100223
  Receipt Date: 20100212
  Transmission Date: 20100710
  Serious: Yes (Other)
  Sender: FDA-Public Use
  Company Number: JP-BRISTOL-MYERS SQUIBB COMPANY-14964597

PATIENT
  Age: 8 Decade
  Sex: Female

DRUGS (2)
  1. ABILIFY [Suspect]
     Indication: DEMENTIA
     Dosage: ABILIFY TABS  6MG
     Route: 048
     Dates: start: 20100101, end: 20100101
  2. ARICEPT [Suspect]
     Route: 048
     Dates: start: 20100101, end: 20100101

REACTIONS (2)
  - CONFUSIONAL STATE [None]
  - HALLUCINATION [None]
